FAERS Safety Report 9135582 (Version 1)
Quarter: 2013Q1

REPORT INFORMATION
  Report Type: Spontaneous
  Country: US (occurrence: US)
  Receive Date: 20130219
  Receipt Date: 20130219
  Transmission Date: 20140127
  Serious: No
  Sender: FDA-Public Use
  Company Number: US-BRISTOL-MYERS SQUIBB COMPANY-16771149

PATIENT
  Age: 53 Year
  Sex: Female

DRUGS (2)
  1. ORENCIA [Suspect]
     Dosage: INTLIV LOADING DOSE:JAN12. LAST DATE OF SUBCUT INJ:15JUL12,11SEP12?1L66334,EXP:JUL13,BATCH:1166331
     Route: 042
     Dates: start: 201201
  2. METHOTREXATE [Concomitant]

REACTIONS (3)
  - Malaise [Recovered/Resolved]
  - Rash [Unknown]
  - Impaired healing [Recovered/Resolved]
